FAERS Safety Report 9404366 (Version 4)
Quarter: 2014Q1

REPORT INFORMATION
  Report Type: Report from Study
  Country: TN (occurrence: TN)
  Receive Date: 20130717
  Receipt Date: 20140128
  Transmission Date: 20141002
  Serious: Yes (Hospitalization)
  Sender: FDA-Public Use
  Company Number: TN-US-EMD SERONO, INC.-7224146

PATIENT
  Age: 24 Year
  Sex: Female

DRUGS (5)
  1. REBIF [Suspect]
     Indication: MULTIPLE SCLEROSIS
     Route: 058
     Dates: start: 200904
  2. VITAMIN C                          /00008001/ [Concomitant]
     Indication: VITAMIN SUPPLEMENTATION
     Dates: start: 2009, end: 2010
  3. VITAMIN E                          /00110501/ [Concomitant]
     Indication: VITAMIN SUPPLEMENTATION
     Dates: start: 2012
  4. TRI B                              /01251201/ [Concomitant]
     Indication: VITAMIN SUPPLEMENTATION
  5. DERMASONE                          /00337102/ [Concomitant]
     Indication: HYPERSENSITIVITY
     Dates: start: 2010, end: 20130916

REACTIONS (9)
  - Uterine leiomyoma [Recovered/Resolved]
  - Injection site scar [Unknown]
  - Vomiting [Recovering/Resolving]
  - Nausea [Unknown]
  - Fungal infection [Recovered/Resolved with Sequelae]
  - Injection site erythema [Not Recovered/Not Resolved]
  - Injection site bruising [Not Recovered/Not Resolved]
  - Influenza like illness [Unknown]
  - Injection site pain [Recovered/Resolved with Sequelae]
